FAERS Safety Report 7491534-4 (Version None)
Quarter: 2011Q2

REPORT INFORMATION
  Report Type: 
  Country: None (occurrence: None)
  Receive Date: 20110519
  Receipt Date: 20110506
  Transmission Date: 20111010
  Serious: Yes (Other)
  Sender: FDA-Public Use
  Company Number: CA-ELI_LILLY_AND_COMPANY-CA201105001698

PATIENT
  Sex: Female

DRUGS (8)
  1. LOXAPINE HCL [Concomitant]
  2. VITAMIN D [Concomitant]
  3. ZYPREXA ZYDIS [Suspect]
     Indication: SCHIZOPHRENIA, PARANOID TYPE
     Dosage: 10 MG, BID
     Dates: start: 20041202
  4. BENZTROPINE MESYLATE [Concomitant]
  5. LORAZEPAM [Concomitant]
  6. ZYPREXA ZYDIS [Suspect]
     Dosage: 5 MG, QD
  7. RISPERIDONE [Concomitant]
  8. ZYPREXA ZYDIS [Suspect]
     Dosage: 20 MG, QD

REACTIONS (9)
  - DIABETIC NEPHROPATHY [None]
  - ALANINE AMINOTRANSFERASE INCREASED [None]
  - ASPARTATE AMINOTRANSFERASE INCREASED [None]
  - MENSTRUATION IRREGULAR [None]
  - HYPERCHOLESTEROLAEMIA [None]
  - BLOOD URINE PRESENT [None]
  - TYPE 2 DIABETES MELLITUS [None]
  - SYNCOPE [None]
  - HYPERLIPIDAEMIA [None]
